FAERS Safety Report 5154531-X (Version None)
Quarter: 2006Q4

REPORT INFORMATION
  Report Type: 
  Country: None (occurrence: None)
  Receive Date: 20061114
  Receipt Date: 20061031
  Transmission Date: 20070319
  Serious: Yes (Other)
  Sender: FDA-Public Use
  Company Number: 2006118031

PATIENT
  Age: 28 Year
  Sex: Female

DRUGS (1)
  1. ZITHROMAX [Suspect]
     Indication: TONSILLITIS
     Dosage: 500 MG (500 MG, FREQUENCY: ONCE INTERVAL: DAY), ORAL
     Route: 048

REACTIONS (3)
  - ABDOMINAL PAIN UPPER [None]
  - SHOCK [None]
  - VOMITING [None]
